FAERS Safety Report 25076701 (Version 1)
Quarter: 2025Q1

REPORT INFORMATION
  Report Type: Spontaneous
  Country: US (occurrence: US)
  Receive Date: 20250313
  Receipt Date: 20250313
  Transmission Date: 20250409
  Serious: Yes (Other)
  Sender: RADIUS PHARM
  Company Number: US-RADIUS HEALTH INC.-2025US002175

PATIENT
  Sex: Female

DRUGS (1)
  1. TYMLOS [Suspect]
     Active Substance: ABALOPARATIDE
     Indication: Product used for unknown indication
     Route: 058

REACTIONS (7)
  - Loss of consciousness [Recovered/Resolved]
  - Fall [Unknown]
  - Blood pressure decreased [Recovered/Resolved]
  - Headache [Unknown]
  - Dizziness [Unknown]
  - Nausea [Unknown]
  - Heart rate increased [Unknown]
